FAERS Safety Report 4641584-8 (Version None)
Quarter: 2005Q2

REPORT INFORMATION
  Report Type: 
  Country: None (occurrence: None)
  Receive Date: 20050420
  Receipt Date: 20050405
  Transmission Date: 20051028
  Serious: Yes (Hospitalization)
  Sender: FDA-Public Use
  Company Number: EWC050443436

PATIENT
  Age: 60 Year
  Sex: Male

DRUGS (2)
  1. GEMCITABINE HYDROCHLORIDE-IV (GEMCITABINE) [Suspect]
     Indication: CHEMOTHERAPY
     Dosage: 2080 MG
     Dates: start: 20050210
  2. INFLIXIMAB [Concomitant]

REACTIONS (2)
  - ASTHENIA [None]
  - JAUNDICE [None]
